FAERS Safety Report 6391635-8 (Version None)
Quarter: 2009Q4

REPORT INFORMATION
  Report Type: 
  Country: None (occurrence: None)
  Receive Date: 20091007
  Receipt Date: 20090820
  Transmission Date: 20100525
  Serious: No
  Sender: FDA-Public Use
  Company Number: A0759742A

PATIENT
  Age: 75 Year
  Sex: Female

DRUGS (4)
  1. ADVAIR DISKUS 100/50 [Suspect]
     Indication: DRUG USE FOR UNKNOWN INDICATION
     Route: 065
     Dates: start: 20090101
  2. ADVAIR DISKUS 100/50 [Suspect]
     Dosage: 1PUFF TWICE PER DAY
     Route: 055
     Dates: start: 20081206
  3. SINGULAIR [Concomitant]
  4. FLUTICASONE PROPIONATE [Concomitant]

REACTIONS (3)
  - DYSPHONIA [None]
  - INCREASED UPPER AIRWAY SECRETION [None]
  - SPEECH DISORDER [None]
